FAERS Safety Report 25600593 (Version 7)
Quarter: 2025Q4

REPORT INFORMATION
  Report Type: Report from Study
  Country: US (occurrence: US)
  Receive Date: 20250724
  Receipt Date: 20251017
  Transmission Date: 20260118
  Serious: Yes (Hospitalization, Other)
  Sender: ACADIA PHARMACEUTICALS
  Company Number: US-ACADIA PHARMACEUTICALS INC.-ACA-2025-PIM-008531

PATIENT
  Age: 62 Year
  Sex: Male

DRUGS (22)
  1. NUPLAZID [Suspect]
     Active Substance: PIMAVANSERIN TARTRATE
     Indication: Parkinson^s disease psychosis
     Dosage: 34 MILLIGRAM, QD
     Route: 048
     Dates: start: 20240212, end: 20250817
  2. NUPLAZID [Suspect]
     Active Substance: PIMAVANSERIN TARTRATE
     Dosage: 34 MILLIGRAM, QD
     Route: 048
  3. ACETAMINOPHEN [Concomitant]
     Active Substance: ACETAMINOPHEN
  4. ASPIRIN [Concomitant]
     Active Substance: ASPIRIN
  5. BACLOFEN [Concomitant]
     Active Substance: BACLOFEN
  6. BUSPIRONE [Concomitant]
     Active Substance: BUSPIRONE HYDROCHLORIDE
  7. CARBIDOPA\LEVODOPA [Concomitant]
     Active Substance: CARBIDOPA\LEVODOPA
     Dosage: ER
  8. VITAMIN D3 [Concomitant]
     Active Substance: CHOLECALCIFEROL
  9. CLONIDINE [Concomitant]
     Active Substance: CLONIDINE
  10. FUROSEMIDE [Concomitant]
     Active Substance: FUROSEMIDE
  11. LORAZEPAM [Concomitant]
     Active Substance: LORAZEPAM
  12. LOSARTAN [Concomitant]
     Active Substance: LOSARTAN
  13. VITAMIN B COMPLEX [Concomitant]
     Active Substance: CYANOCOBALAMIN\DEXPANTHENOL\NIACINAMIDE\PYRIDOXINE HYDROCHLORIDE\RIBOFLAVIN 5^-PHOSPHATE SODIUM\THIA
  14. OMEPRAZOLE [Concomitant]
     Active Substance: OMEPRAZOLE
  15. QUETIAPINE [Concomitant]
     Active Substance: QUETIAPINE
  16. ATORVASTATIN [Concomitant]
     Active Substance: ATORVASTATIN
  17. PRAMIPEXOLE [Concomitant]
     Active Substance: PRAMIPEXOLE
  18. LYRICA [Concomitant]
     Active Substance: PREGABALIN
  19. MAGNESIUM [Concomitant]
     Active Substance: MAGNESIUM
  20. OZEMPIC [Concomitant]
     Active Substance: SEMAGLUTIDE
     Dosage: 2MG/3ML PENS
  21. METFORMIN HYDROCHLORIDE [Concomitant]
     Active Substance: METFORMIN HYDROCHLORIDE
  22. CYMBALTA [Concomitant]
     Active Substance: DULOXETINE HYDROCHLORIDE

REACTIONS (5)
  - Wound infection staphylococcal [Recovering/Resolving]
  - Shoulder operation [Unknown]
  - Postoperative wound infection [Recovering/Resolving]
  - Therapy interrupted [Not Recovered/Not Resolved]
  - Product use issue [Not Recovered/Not Resolved]

NARRATIVE: CASE EVENT DATE: 20250704
